FAERS Safety Report 5567681-0 (Version None)
Quarter: 2007Q4

REPORT INFORMATION
  Report Type: 
  Country: None (occurrence: None)
  Receive Date: 20071219
  Receipt Date: 20071207
  Transmission Date: 20080405
  Serious: Yes (Hospitalization)
  Sender: FDA-Public Use
  Company Number: FR-PFIZER INC-2007103171

PATIENT
  Age: 44 Year
  Sex: Male

DRUGS (2)
  1. CEFPODOXIME PROXETIL [Suspect]
     Dosage: DAILY DOSE:200MG
     Route: 048
     Dates: start: 20060201, end: 20060201
  2. ACETYLSALICYLIC ACID SRT [Concomitant]
     Route: 048
     Dates: start: 20060201, end: 20060201

REACTIONS (4)
  - ANGIOEDEMA [None]
  - DYSPHAGIA [None]
  - LIP OEDEMA [None]
  - PRURITUS [None]
